FAERS Safety Report 12166264 (Version 1)
Quarter: 2016Q1

REPORT INFORMATION
  Report Type: Spontaneous
  Country: US (occurrence: US)
  Receive Date: 20160309
  Receipt Date: 20160309
  Transmission Date: 20160526
  Serious: Yes (Hospitalization, Disabling)
  Sender: FDA-Public Use
  Company Number: US-ENDO PHARMACEUTICALS INC.-2015-005037

PATIENT
  Age: 70 Year
  Sex: Male
  Weight: 97.16 kg

DRUGS (3)
  1. TESTIM [Suspect]
     Active Substance: TESTOSTERONE
     Indication: ANDROGEN REPLACEMENT THERAPY
     Route: 062
  2. TEST/P4 TOPICAL [Suspect]
     Active Substance: TESTOSTERONE
     Indication: ANDROGEN REPLACEMENT THERAPY
     Route: 061
     Dates: start: 201212, end: 201312
  3. CREAM [Suspect]
     Active Substance: UNSPECIFIED INGREDIENT
     Indication: ANDROGEN REPLACEMENT THERAPY
     Route: 065
     Dates: start: 201401, end: 201401

REACTIONS (4)
  - Cardiovascular disorder [Not Recovered/Not Resolved]
  - Acute myocardial infarction [Not Recovered/Not Resolved]
  - Product quality issue [None]
  - Coronary artery disease [Not Recovered/Not Resolved]

NARRATIVE: CASE EVENT DATE: 201402
